FAERS Safety Report 5677946-X (Version None)
Quarter: 2008Q1

REPORT INFORMATION
  Report Type: 
  Country: None (occurrence: None)
  Receive Date: 20080319
  Receipt Date: 20080313
  Transmission Date: 20080703
  Serious: Yes (Other)
  Sender: FDA-Public Use
  Company Number: 2008SP005164

PATIENT
  Sex: Female

DRUGS (2)
  1. CLARINEX D 24 HOUR [Suspect]
     Indication: DRUG USE FOR UNKNOWN INDICATION
     Dosage: PO
     Route: 048
  2. MAXALT [Suspect]
     Indication: DRUG USE FOR UNKNOWN INDICATION
     Dosage: 10 MG

REACTIONS (5)
  - BLOOD PRESSURE SYSTOLIC INCREASED [None]
  - DELIRIUM [None]
  - ERYTHEMA [None]
  - HYPERHIDROSIS [None]
  - VOMITING [None]
